FAERS Safety Report 6452939-3 (Version None)
Quarter: 2009Q4

REPORT INFORMATION
  Report Type: 
  Country: None (occurrence: None)
  Receive Date: 20091124
  Receipt Date: 20091116
  Transmission Date: 20100525
  Serious: Yes (Other)
  Sender: FDA-Public Use
  Company Number: IT-TYCO HEALTHCARE/MALLINCKRODT-T200902116

PATIENT

DRUGS (2)
  1. NALTREXONE HYDROCHLORIDE [Suspect]
     Indication: PRIMARY PROGRESSIVE MULTIPLE SCLEROSIS
     Dosage: 2 MG, QD (HS) X 4 WEEKS
     Route: 048
  2. NALTREXONE HYDROCHLORIDE [Suspect]
     Dosage: INCREASED UP TO 4 MG QD WITHIN FIRST 2 WEEKS UNTIL THE END OF THE STUDY
     Route: 048

REACTIONS (1)
  - RENAL FAILURE [None]
